FAERS Safety Report 21781909 (Version 1)
Quarter: 2022Q4

REPORT INFORMATION
  Report Type: Spontaneous
  Country: FI (occurrence: FI)
  Receive Date: 20221227
  Receipt Date: 20221227
  Transmission Date: 20230113
  Serious: Yes (Other)
  Sender: FDA-Public Use
  Company Number: FI-002147023-NVSC2022FI244567

PATIENT
  Age: 61 Year
  Sex: Female

DRUGS (2)
  1. PACLITAXEL [Suspect]
     Active Substance: PACLITAXEL
     Indication: Squamous cell carcinoma of the oral cavity
     Dosage: UNK,THREE CYCLES, CYCLIC
     Route: 065
  2. CARBOPLATIN [Suspect]
     Active Substance: CARBOPLATIN
     Indication: Squamous cell carcinoma of the oral cavity
     Dosage: THREE CYCLES, CYCLIC
     Route: 065

REACTIONS (3)
  - Malignant neoplasm progression [Unknown]
  - Squamous cell carcinoma of the oral cavity [Unknown]
  - Drug ineffective for unapproved indication [Unknown]
